FAERS Safety Report 9897670 (Version 1)
Quarter: 2014Q1

REPORT INFORMATION
  Report Type: Spontaneous
  Country: GB (occurrence: GB)
  Receive Date: 20140214
  Receipt Date: 20140214
  Transmission Date: 20141002
  Serious: Yes (Other)
  Sender: FDA-Public Use
  Company Number: GB-ASTRAZENECA-2014SE09053

PATIENT
  Age: 24044 Day
  Sex: Male

DRUGS (5)
  1. TENORMIN LS [Suspect]
     Indication: BLOOD PRESSURE ABNORMAL
     Dosage: OLD STYLE TENORMIN, 50 MG DAILY
     Route: 048
     Dates: end: 20140104
  2. TENORMIN LS [Suspect]
     Indication: BLOOD PRESSURE ABNORMAL
     Dosage: NEW STYLE TENORMIN, 50 MG DAILY
     Route: 048
     Dates: start: 20140105, end: 201401
  3. TENORMIN LS [Suspect]
     Indication: BLOOD PRESSURE ABNORMAL
     Dosage: OLD STYLE TENORMIN, 50 MG DAILY
     Route: 048
  4. DIHYDROCODEINE [Concomitant]
  5. SENNA [Concomitant]

REACTIONS (3)
  - Palpitations [Recovered/Resolved]
  - Alopecia [Recovered/Resolved]
  - Sleep disorder [Recovered/Resolved]
